FAERS Safety Report 15762286 (Version 1)
Quarter: 2018Q4

REPORT INFORMATION
  Report Type: Spontaneous
  Country: JP (occurrence: JP)
  Receive Date: 20181226
  Receipt Date: 20181226
  Transmission Date: 20190205
  Serious: Yes (Other)
  Sender: FDA-Public Use
  Company Number: JP-MYLANLABS-2018M1095691

PATIENT
  Age: 3 Year
  Sex: Female

DRUGS (4)
  1. FLUCONAZOLE. [Suspect]
     Active Substance: FLUCONAZOLE
     Indication: ANTIFUNGAL PROPHYLAXIS
     Route: 065
  2. VINCRISTINE [Interacting]
     Active Substance: VINCRISTINE
     Indication: HEPATOBLASTOMA
     Dosage: ON DAY-1 IN COMBINATION WITH IRINOTECAN
     Route: 065
  3. SULFAMETHOXAZOLE/TRIMETHOPRIM [Concomitant]
     Active Substance: SULFAMETHOXAZOLE\TRIMETHOPRIM
     Indication: PROPHYLAXIS
     Route: 065
  4. IRINOTECAN [Concomitant]
     Active Substance: IRINOTECAN
     Indication: HEPATOBLASTOMA
     Dosage: ON DAYS 1-5 IN COMBINATION WITH VINCRISTINE
     Route: 065

REACTIONS (2)
  - Neuropathy peripheral [Recovered/Resolved]
  - Drug interaction [Recovered/Resolved]
